FAERS Safety Report 17716092 (Version 1)
Quarter: 2020Q2

REPORT INFORMATION
  Report Type: Other
  Country: US (occurrence: US)
  Receive Date: 20200428
  Receipt Date: 20200428
  Transmission Date: 20200714
  Serious: Yes (Death)
  Sender: FDA-Public Use
  Company Number: US-HEALTHCARE PHARMACEUTICALS LTD.-2083191

PATIENT
  Age: 62 Year
  Sex: Female

DRUGS (10)
  1. VINCRISTINE SULFATE. [Suspect]
     Active Substance: VINCRISTINE SULFATE
     Route: 065
  2. PREDNISONE. [Suspect]
     Active Substance: PREDNISONE
     Route: 065
  3. RITUXIMAB. [Suspect]
     Active Substance: RITUXIMAB
     Route: 065
  4. DEXAMETHASONE. [Suspect]
     Active Substance: DEXAMETHASONE
     Route: 065
  5. METHOTREXATE. [Suspect]
     Active Substance: METHOTREXATE
     Route: 065
  6. CYCLOPHOSPHAMIDE. [Suspect]
     Active Substance: CYCLOPHOSPHAMIDE
     Route: 065
  7. DOXORUBICIN HYDROCHLORIDE. [Suspect]
     Active Substance: DOXORUBICIN HYDROCHLORIDE
     Indication: DIFFUSE LARGE B-CELL LYMPHOMA
     Route: 065
  8. CYTARABINE. [Suspect]
     Active Substance: CYTARABINE
     Route: 065
  9. ONCOVIN [Suspect]
     Active Substance: VINCRISTINE SULFATE
     Route: 065
  10. CYCLOPHOSPHAMIDE. [Suspect]
     Active Substance: CYCLOPHOSPHAMIDE
     Route: 065

REACTIONS (2)
  - Myelodysplastic syndrome [Fatal]
  - Acute myeloid leukaemia [Fatal]
